FAERS Safety Report 23115728 (Version 2)
Quarter: 2023Q4

REPORT INFORMATION
  Report Type: Spontaneous
  Country: JP (occurrence: JP)
  Receive Date: 20231027
  Receipt Date: 20231124
  Transmission Date: 20240110
  Serious: No
  Sender: FDA-Public Use
  Company Number: JP-NShinyaku-EVA202306800ZZLILLY

PATIENT
  Sex: Male

DRUGS (1)
  1. TADALAFIL [Suspect]
     Active Substance: TADALAFIL
     Indication: Product used for unknown indication
     Dosage: 5 MG, UNKNOWN
     Route: 048

REACTIONS (2)
  - Cataract [Unknown]
  - Cataract operation complication [Unknown]
